FAERS Safety Report 9364216 (Version 2)
Quarter: 2013Q3

REPORT INFORMATION
  Report Type: Spontaneous
  Country: US (occurrence: US)
  Receive Date: 20130624
  Receipt Date: 20130715
  Transmission Date: 20140515
  Serious: Yes (Hospitalization, Other)
  Sender: FDA-Public Use
  Company Number: US-PFIZER INC-2013184966

PATIENT
  Age: 93 Year
  Sex: 0

DRUGS (3)
  1. LIPITOR [Suspect]
     Dosage: 40, UNITS NOT PROVIDED
  2. NORVASC [Suspect]
     Dosage: 10, UNITS NOT PROVIDED
  3. ZOLOFT [Suspect]
     Dosage: 25, UNITS NOT PROVIDED

REACTIONS (1)
  - Cardiac failure congestive [Unknown]
